FAERS Safety Report 8402203-8 (Version None)
Quarter: 2012Q2

REPORT INFORMATION
  Report Type: 
  Country: None (occurrence: None)
  Receive Date: 20120601
  Receipt Date: 20120529
  Transmission Date: 20120825
  Serious: No
  Sender: FDA-Public Use
  Company Number: US-PFIZER INC-2012130259

PATIENT
  Sex: Female
  Weight: 64.399 kg

DRUGS (5)
  1. ZOLOFT [Suspect]
     Indication: DEPRESSION
     Dosage: 100 MG, 1X/DAY AT NIGHT
     Dates: start: 20110701, end: 20120301
  2. ZOLOFT [Suspect]
     Indication: FIBROMYALGIA
  3. HYDROCODONE [Suspect]
     Indication: PAIN
     Dosage: 500 MG, 1X/DAY AT NIGHT
  4. MOBIC [Concomitant]
     Indication: RHEUMATOID ARTHRITIS
     Dosage: 50 MG, 1X/DAY AT NIGHT
  5. PLAQUENIL [Concomitant]
     Indication: SYSTEMIC LUPUS ERYTHEMATOSUS
     Dosage: 200 MG, 1X/DAY AT NIGHT

REACTIONS (1)
  - PAIN [None]
